FAERS Safety Report 7287819-7 (Version None)
Quarter: 2011Q1

REPORT INFORMATION
  Report Type: 
  Country: None (occurrence: None)
  Receive Date: 20110201
  Receipt Date: 20110110
  Transmission Date: 20110831
  Serious: Yes (Hospitalization, Other)
  Sender: FDA-Public Use
  Company Number: 20110044

PATIENT
  Age: 20 Year
  Sex: Male

DRUGS (4)
  1. CEFTRIAXONE [Suspect]
     Indication: TENOSYNOVITIS
     Dosage: UNKNOWN X 1 DOSE
  2. DOXYCYCLINE [Suspect]
     Indication: TENOSYNOVITIS
     Dosage: UNKNOWN DOSE, 2 DAYS
  3. VANCOMYCIN [Suspect]
     Indication: TENOSYNOVITIS
     Dosage: UNKNOWN X 1 DOSE
  4. COTRIM [Suspect]
     Indication: TENOSYNOVITIS
     Dosage: UNKNOWN DOSE X 10 DAYS

REACTIONS (14)
  - PYREXIA [None]
  - SEPTIC SHOCK [None]
  - HUMAN HERPESVIRUS 6 INFECTION [None]
  - DRUG ERUPTION [None]
  - SPLENIC INFARCTION [None]
  - TRANSAMINASES INCREASED [None]
  - DISEASE RECURRENCE [None]
  - DRUG RASH WITH EOSINOPHILIA AND SYSTEMIC SYMPTOMS [None]
  - DISSEMINATED INTRAVASCULAR COAGULATION [None]
  - LYMPHADENOPATHY [None]
  - LICHENOID KERATOSIS [None]
  - RENAL FAILURE [None]
  - MYALGIA [None]
  - RESPIRATORY FAILURE [None]
